FAERS Safety Report 4526978-3 (Version None)
Quarter: 2004Q4

REPORT INFORMATION
  Report Type: 
  Country: None (occurrence: None)
  Receive Date: 20041207
  Receipt Date: 20041124
  Transmission Date: 20050328
  Serious: Yes (Other)
  Sender: FDA-Public Use
  Company Number: ALB/04/07/USA

PATIENT
  Age: 82 Year
  Sex: Female
  Weight: 69.4911 kg

DRUGS (2)
  1. ALBUMIN (HUMAN) [Suspect]
     Indication: OLIGURIA
     Dosage: 50 ML, ONCE, I.V.
     Route: 042
     Dates: start: 20041123, end: 20041123
  2. LASIX [Concomitant]

REACTIONS (4)
  - DISEASE PROGRESSION [None]
  - HYPERSENSITIVITY [None]
  - SOMNOLENCE [None]
  - SWELLING FACE [None]
